FAERS Safety Report 8183386-4 (Version None)
Quarter: 2012Q1

REPORT INFORMATION
  Report Type: 
  Country: None (occurrence: None)
  Receive Date: 20120201
  Receipt Date: 20101201
  Transmission Date: 20120608
  Serious: No
  Sender: FDA-Public Use
  Company Number: 258864USA

PATIENT
  Sex: Male

DRUGS (1)
  1. PROPOXYPHENE NAPSYLATE AND ACETAMINOPHEN [Suspect]
     Dosage: 100 MG/650 MG
     Dates: start: 20020101

REACTIONS (4)
  - CHEST PAIN [None]
  - RASH [None]
  - DYSKINESIA [None]
  - TREMOR [None]
